FAERS Safety Report 23912997 (Version 2)
Quarter: 2024Q2

REPORT INFORMATION
  Report Type: Report from Study
  Country: US (occurrence: US)
  Receive Date: 20240529
  Receipt Date: 20240530
  Transmission Date: 20240716
  Serious: No
  Sender: FDA-Public Use
  Company Number: US-BRISTOL-MYERS SQUIBB COMPANY-2024-085157

PATIENT
  Age: 53 Year
  Sex: Female
  Weight: 63.5 kg

DRUGS (2)
  1. ZEPOSIA [Suspect]
     Active Substance: OZANIMOD HYDROCHLORIDE
     Indication: Colitis ulcerative
     Route: 048
     Dates: start: 20240507
  2. IRON [Concomitant]
     Active Substance: IRON
     Indication: Product used for unknown indication

REACTIONS (2)
  - Arthralgia [Unknown]
  - Gait disturbance [Unknown]

NARRATIVE: CASE EVENT DATE: 20240501
